FAERS Safety Report 9009802 (Version 2)
Quarter: 2013Q1

REPORT INFORMATION
  Report Type: Spontaneous
  Country: US (occurrence: US)
  Receive Date: 20130110
  Receipt Date: 20130213
  Transmission Date: 20140127
  Serious: No
  Sender: FDA-Public Use
  Company Number: US-BAYER-2013-002735

PATIENT
  Age: 27 Year
  Sex: Female
  Weight: 70 kg

DRUGS (1)
  1. MIRENA [Suspect]
     Dosage: 20 MCG/24HR, CONT
     Route: 015
     Dates: start: 20110317, end: 20110922

REACTIONS (6)
  - Arthralgia [None]
  - Nocturia [None]
  - Headache [None]
  - Metrorrhagia [None]
  - Pollakiuria [None]
  - Abdominal pain lower [None]
